FAERS Safety Report 25359982 (Version 2)
Quarter: 2025Q3

REPORT INFORMATION
  Report Type: Report from Study
  Country: US (occurrence: US)
  Receive Date: 20250526
  Receipt Date: 20250826
  Transmission Date: 20251020
  Serious: Yes (Other)
  Sender: ABBVIE
  Company Number: US-ABBVIE-6281568

PATIENT
  Age: 83 Year
  Sex: Male
  Weight: 68 kg

DRUGS (1)
  1. VENETOCLAX [Suspect]
     Active Substance: VENETOCLAX
     Indication: Chronic lymphocytic leukaemia
     Dosage: FORM STRENGTH 100 MG
     Route: 048

REACTIONS (2)
  - Device loosening [Unknown]
  - Emergency care [Unknown]

NARRATIVE: CASE EVENT DATE: 20250201
